FAERS Safety Report 7525118-6 (Version None)
Quarter: 2011Q2

REPORT INFORMATION
  Report Type: 
  Country: None (occurrence: None)
  Receive Date: 20110606
  Receipt Date: 20091130
  Transmission Date: 20111010
  Serious: Yes (Other)
  Sender: FDA-Public Use
  Company Number: US-BAYER-200941228NA

PATIENT
  Age: 52 Year
  Sex: Male
  Weight: 102 kg

DRUGS (14)
  1. LASIX [Concomitant]
     Dosage: 20 MG, UNK
     Route: 048
  2. COREG [Concomitant]
     Dosage: 12.5 MG, BID
     Route: 048
  3. EPINEPHRINE [Concomitant]
     Dosage: 3 MICROGRAMS PER MINUTE
     Route: 042
     Dates: start: 20020109
  4. MONOPRIL [Concomitant]
     Dosage: 20 MG, BID
     Route: 048
  5. HYDRALAZINE HCL [Concomitant]
     Dosage: 50 MG, TID
     Route: 048
  6. VASOPRESSIN [Concomitant]
     Dosage: 15 MICROGRAMS PER MINUTE
     Route: 042
     Dates: start: 20020102
  7. DEMADEX [Concomitant]
     Dosage: 20 MG, BID
     Route: 048
  8. TRASYLOL [Suspect]
     Indication: MEDICAL DEVICE REMOVAL
  9. TRASYLOL [Suspect]
     Indication: HEART TRANSPLANT
  10. EPINEPHRINE [Concomitant]
     Dosage: 13 MICROGRAMS PER MINUTE
     Route: 042
     Dates: start: 20020102
  11. LEVOPHED [Concomitant]
     Dosage: 4.5 MICROGRAMS PER MINUTES
     Route: 042
     Dates: start: 20020109
  12. TRASYLOL [Suspect]
     Indication: VENTRICULAR ASSIST DEVICE INSERTION
     Dosage: UNK
     Route: 042
     Dates: start: 20020109
  13. TRASYLOL [Suspect]
     Indication: VALVULOPLASTY CARDIAC
     Route: 042
     Dates: start: 20020102
  14. DIGOXIN [Concomitant]
     Dosage: 0.5 MG, QD
     Route: 048

REACTIONS (12)
  - DEPRESSION [None]
  - RENAL IMPAIRMENT [None]
  - FEAR [None]
  - PAIN [None]
  - INJURY [None]
  - ANHEDONIA [None]
  - RENAL FAILURE [None]
  - UNEVALUABLE EVENT [None]
  - RENAL INJURY [None]
  - EMOTIONAL DISTRESS [None]
  - ANXIETY [None]
  - STRESS [None]
